FAERS Safety Report 6686218-6 (Version None)
Quarter: 2010Q2

REPORT INFORMATION
  Report Type: 
  Country: None (occurrence: None)
  Receive Date: 20100419
  Receipt Date: 20100407
  Transmission Date: 20101027
  Serious: No
  Sender: FDA-Public Use
  Company Number: US-JNJFOC-20100403041

PATIENT
  Sex: Female
  Weight: 55.79 kg

DRUGS (8)
  1. FENTANYL CITRATE [Suspect]
     Indication: NERVE INJURY
     Route: 062
  2. FENTANYL CITRATE [Suspect]
     Indication: PAIN
     Route: 062
  3. FOLIC ACID [Concomitant]
     Indication: BLOOD HOMOCYSTEINE
     Route: 048
  4. ALLEGRA [Concomitant]
     Indication: DRUG USE FOR UNKNOWN INDICATION
     Route: 048
  5. COENZYME Q10 [Concomitant]
     Indication: DRUG USE FOR UNKNOWN INDICATION
     Route: 048
  6. VITAMIN B3 [Concomitant]
     Indication: DRUG USE FOR UNKNOWN INDICATION
     Route: 048
  7. VITAMIN B6 [Concomitant]
     Indication: DRUG USE FOR UNKNOWN INDICATION
     Route: 048
  8. LAXATIVES [Concomitant]
     Indication: CONSTIPATION
     Route: 048

REACTIONS (1)
  - WRONG TECHNIQUE IN DRUG USAGE PROCESS [None]
